FAERS Safety Report 8581169-4 (Version None)
Quarter: 2012Q3

REPORT INFORMATION
  Report Type: 
  Country: None (occurrence: None)
  Receive Date: 20120809
  Receipt Date: 20120731
  Transmission Date: 20120928
  Serious: Yes (Other)
  Sender: FDA-Public Use
  Company Number: CA-JNJFOC-20120800711

PATIENT
  Sex: Female
  Weight: 109 kg

DRUGS (2)
  1. METHOTREXATE [Concomitant]
     Route: 048
  2. REMICADE [Suspect]
     Indication: CROHN'S DISEASE
     Dosage: 0-2 INDUCTION DOSE
     Route: 042
     Dates: start: 20120626

REACTIONS (1)
  - PULMONARY EMBOLISM [None]
